FAERS Safety Report 6204637-9 (Version None)
Quarter: 2009Q2

REPORT INFORMATION
  Report Type: 
  Country: None (occurrence: None)
  Receive Date: 20090527
  Receipt Date: 20090518
  Transmission Date: 20091009
  Serious: Yes (Death, Other)
  Sender: FDA-Public Use
  Company Number: IT-GENENTECH-283637

PATIENT

DRUGS (3)
  1. TRASTUZUMAB [Suspect]
     Indication: BREAST CANCER METASTATIC
     Dosage: 2 MG/KG, UNK
     Route: 042
  2. TRASTUZUMAB [Suspect]
     Dosage: 1 MG/KG, 1/WEEK
     Route: 042
  3. EPIRUBICIN [Suspect]
     Indication: BREAST CANCER METASTATIC
     Dosage: 90 MG/M2, Q3W
     Route: 040

REACTIONS (11)
  - ALOPECIA [None]
  - ANAEMIA [None]
  - CARDIAC FAILURE CONGESTIVE [None]
  - DEATH [None]
  - DISEASE PROGRESSION [None]
  - FEBRILE NEUTROPENIA [None]
  - LEUKOPENIA [None]
  - MUCOSAL INFLAMMATION [None]
  - NEUTROPENIA [None]
  - SKIN TOXICITY [None]
  - THROMBOCYTOPENIA [None]
